FAERS Safety Report 10897655 (Version 2)
Quarter: 2015Q1

REPORT INFORMATION
  Report Type: Spontaneous
  Country: FR (occurrence: FR)
  Receive Date: 20150309
  Receipt Date: 20150320
  Transmission Date: 20150721
  Serious: Yes (Hospitalization, Other)
  Sender: FDA-Public Use
  Company Number: FR-PFIZER INC-2015074745

PATIENT
  Age: 65 Year
  Sex: Male

DRUGS (17)
  1. ALKERAN [Suspect]
     Active Substance: MELPHALAN
     Indication: MANTLE CELL LYMPHOMA
     Dosage: 280 MG, ON DAY-2 ONLY
     Route: 042
     Dates: start: 20150112, end: 20150112
  2. SOLU-MEDROL [Concomitant]
     Active Substance: METHYLPREDNISOLONE SODIUM SUCCINATE
     Indication: ANTIEMETIC SUPPORTIVE CARE
     Dosage: 80 MG, DAILY
     Route: 042
     Dates: start: 20150106, end: 20150113
  3. VALACICLOVIR [Concomitant]
     Active Substance: VALACYCLOVIR HYDROCHLORIDE
  4. EMEND [Concomitant]
     Active Substance: APREPITANT
     Indication: ANTIEMETIC SUPPORTIVE CARE
     Dosage: 125 MG, UNK
     Route: 048
     Dates: start: 20150106, end: 20150106
  5. SYMBICORT [Concomitant]
     Active Substance: BUDESONIDE\FORMOTEROL FUMARATE DIHYDRATE
  6. PIPERACILLINE / TAZOBACTAM MYLAN [Suspect]
     Active Substance: PIPERACILLIN SODIUM\TAZOBACTAM SODIUM
     Indication: ANTIBIOTIC THERAPY
     Dosage: 4 G, 4X/DAY
     Route: 042
     Dates: start: 20150116, end: 20150129
  7. LEVACT [Suspect]
     Active Substance: BENDAMUSTINE HYDROCHLORIDE
     Indication: MANTLE CELL LYMPHOMA
     Dosage: 400 MG, ON DAY 7 AND 8
     Route: 042
     Dates: start: 20150106, end: 20150107
  8. ZOPHREN [Concomitant]
     Active Substance: ONDANSETRON
     Indication: ANTIEMETIC SUPPORTIVE CARE
     Dosage: 8 MG, DAILY
     Route: 042
     Dates: start: 20150106, end: 20150112
  9. ARACYTINE [Suspect]
     Active Substance: CYTARABINE
     Indication: MANTLE CELL LYMPHOMA
     Dosage: 400 MG, 2X/DAY
     Route: 042
     Dates: start: 20150108, end: 20150111
  10. ETOPOSIDE MYLAN [Suspect]
     Active Substance: ETOPOSIDE
     Indication: MANTLE CELL LYMPHOMA
     Dosage: 200 MG, 2X/DAY FROM DAY-6 TO DAY-3
     Route: 042
     Dates: start: 20150108, end: 20150111
  11. VANCOMYCINE MYLAN [Suspect]
     Active Substance: VANCOMYCIN
     Indication: ANTIBIOTIC THERAPY
     Dosage: 2.5 G, 1X/DAY
     Route: 042
     Dates: start: 20150116, end: 20150129
  12. ZOVIRAX [Suspect]
     Active Substance: ACYCLOVIR
     Indication: ANTIVIRAL TREATMENT
     Dosage: 500 MG, 2X/DAY
     Route: 042
     Dates: start: 20150116
  13. OMNIPAQUE [Suspect]
     Active Substance: IOHEXOL
     Indication: SCAN
     Dosage: UNK, SINGLE
     Route: 042
     Dates: start: 20150120, end: 20150120
  14. AIROMIR [Concomitant]
     Active Substance: ALBUTEROL SULFATE
  15. BACTRIM [Concomitant]
     Active Substance: SULFAMETHOXAZOLE\TRIMETHOPRIM
  16. EMEND [Concomitant]
     Active Substance: APREPITANT
     Dosage: 80 MG, UNK
     Route: 048
     Dates: start: 20150107, end: 20150114
  17. ATACAND [Concomitant]
     Active Substance: CANDESARTAN CILEXETIL

REACTIONS (5)
  - Infectious colitis [Unknown]
  - Ascites [Unknown]
  - Acute kidney injury [Recovering/Resolving]
  - Sepsis [Unknown]
  - Bone marrow failure [Recovered/Resolved]

NARRATIVE: CASE EVENT DATE: 201501
